FAERS Safety Report 8892729 (Version 1)
Quarter: 2012Q4

REPORT INFORMATION
  Report Type: 
  Country: US (occurrence: US)
  Receive Date: 20121107
  Receipt Date: 20121107
  Transmission Date: 20130627
  Serious: No
  Sender: FDA-Public Use
  Company Number: US-AMGEN-USASP2011061415

PATIENT
  Weight: 71.2 kg

DRUGS (11)
  1. ENBREL [Suspect]
     Indication: PRODUCT USED FOR UNKNOWN INDICATION
     Dosage: 50 mg, qwk
     Route: 058
  2. PLAQUENIL [Concomitant]
     Dosage: 200 mg, UNK
  3. ZYRTEC [Concomitant]
     Dosage: 5 mg, UNK
  4. CARDIZEM LA [Concomitant]
     Dosage: 120 mg, UNK
  5. HYDROCHLOROTH [Concomitant]
     Dosage: 25 mg, UNK
  6. PRILOSEC [Concomitant]
     Dosage: 10 mg, UNK
  7. ADVIL [Concomitant]
     Dosage: 200 mg, UNK
  8. POTASSIUM [Concomitant]
     Dosage: 75 mg, UNK
  9. POTASSIUM [Concomitant]
     Dosage: 25 mEq, UNK
  10. VITAMIN D [Concomitant]
     Dosage: 400 IU, UNK
  11. FISH OIL [Concomitant]

REACTIONS (2)
  - Squamous cell carcinoma [Unknown]
  - Basal cell carcinoma [Unknown]
